FAERS Safety Report 19875532 (Version 1)
Quarter: 2021Q3

REPORT INFORMATION
  Report Type: Spontaneous
  Country: PL (occurrence: PL)
  Receive Date: 20210923
  Receipt Date: 20210923
  Transmission Date: 20211014
  Serious: Yes (Hospitalization, Other)
  Sender: FDA-Public Use
  Company Number: PL-INDIVIOR US-INDV-131152-2021

PATIENT
  Age: 38 Year
  Sex: Male

DRUGS (2)
  1. ALCOHOL. [Suspect]
     Active Substance: ALCOHOL
     Indication: PRODUCT USED FOR UNKNOWN INDICATION
     Dosage: UNK
     Route: 065
  2. BUPRENORPHINE. [Suspect]
     Active Substance: BUPRENORPHINE
     Indication: PRODUCT USED FOR UNKNOWN INDICATION
     Dosage: 20 MILLIGRAM, QD
     Route: 065

REACTIONS (8)
  - Dependence [Recovered/Resolved]
  - Anxiety [Unknown]
  - Aggression [Unknown]
  - Insomnia [Recovering/Resolving]
  - Delusional disorder, unspecified type [Unknown]
  - Hallucination [Recovered/Resolved]
  - Parkinsonism [Recovering/Resolving]
  - Agitation [Unknown]
